FAERS Safety Report 9574707 (Version 1)
Quarter: 2013Q4

REPORT INFORMATION
  Report Type: Spontaneous
  Country: RU (occurrence: RU)
  Receive Date: 20131001
  Receipt Date: 20131001
  Transmission Date: 20140711
  Serious: Yes (Hospitalization)
  Sender: FDA-Public Use
  Company Number: RU-ASTRAZENECA-2013SE71689

PATIENT
  Age: 23098 Day
  Sex: Female
  Weight: 92 kg

DRUGS (6)
  1. BETALOC ZOK [Suspect]
     Indication: ANGINA PECTORIS
     Route: 048
     Dates: start: 20120204
  2. PLAVIX [Concomitant]
     Indication: ACUTE CORONARY SYNDROME
     Route: 048
     Dates: start: 20111116
  3. AC.ACETYLSALICYLIC [Concomitant]
     Indication: ACUTE CORONARY SYNDROME
     Route: 048
     Dates: start: 20111116
  4. ATORVASTATIN [Concomitant]
     Indication: CORONARY ARTERY DISEASE
     Route: 048
     Dates: start: 20111116
  5. ENALAPRIL [Concomitant]
     Indication: HYPERTENSION
     Route: 048
     Dates: start: 20111116
  6. AMLODIPIN [Concomitant]
     Indication: HYPERTENSION
     Dates: start: 20120909

REACTIONS (2)
  - Angina unstable [Recovered/Resolved]
  - Drug ineffective [Unknown]
